FAERS Safety Report 15584574 (Version 1)
Quarter: 2018Q4

REPORT INFORMATION
  Report Type: Spontaneous
  Country: US (occurrence: US)
  Receive Date: 20181101
  Receipt Date: 20181101
  Transmission Date: 20190205
  Serious: Yes (Hospitalization)
  Sender: FDA-Public Use
  Company Number: None

PATIENT
  Age: 66 Year
  Sex: Male

DRUGS (10)
  1. KEPPRA PROPHY [Concomitant]
  2. PEPCID [Concomitant]
     Active Substance: FAMOTIDINE
  3. DITROPAN [Concomitant]
     Active Substance: OXYBUTYNIN CHLORIDE
  4. TRANDATE [Concomitant]
     Active Substance: LABETALOL HYDROCHLORIDE
  5. YESCARTA [Suspect]
     Active Substance: AXICABTAGENE CILOLEUCEL
     Indication: DIFFUSE LARGE B-CELL LYMPHOMA
     Dosage: ?          OTHER DOSE:2X10^8TH CAR-T CEL;OTHER FREQUENCY:ONE TIME DOSE;?
     Route: 041
     Dates: start: 20180723
  6. DEXAMETHASONE. [Concomitant]
     Active Substance: DEXAMETHASONE
  7. FAMVIR [Concomitant]
     Active Substance: FAMCICLOVIR
  8. CYCLOPHOSPHAMIDE. [Concomitant]
     Active Substance: CYCLOPHOSPHAMIDE
  9. FLUDARABINE [Concomitant]
     Active Substance: FLUDARABINE PHOSPHATE
  10. ACETAMINOPHEN. [Concomitant]
     Active Substance: ACETAMINOPHEN

REACTIONS (8)
  - Tremor [None]
  - Syncope [None]
  - Aphasia [None]
  - Nystagmus [None]
  - Facial paralysis [None]
  - Intention tremor [None]
  - Paranoia [None]
  - Neurotoxicity [None]

NARRATIVE: CASE EVENT DATE: 20180808
